FAERS Safety Report 9235928 (Version 2)
Quarter: 2013Q2

REPORT INFORMATION
  Report Type: Spontaneous
  Country: US (occurrence: US)
  Receive Date: 20130417
  Receipt Date: 20130429
  Transmission Date: 20140414
  Serious: Yes (Death)
  Sender: FDA-Public Use
  Company Number: US-UCBSA-083149

PATIENT
  Age: 30 Year
  Sex: Male

DRUGS (6)
  1. XYREM [Suspect]
     Indication: NARCOLEPSY
     Dosage: UNKNOWN DOSE
     Route: 048
     Dates: start: 20121115
  2. XYREM [Suspect]
     Indication: CATAPLEXY
     Dosage: UNKNOWN DOSE
     Route: 048
     Dates: start: 20121115
  3. XYREM [Suspect]
     Indication: NARCOLEPSY
     Dosage: NIGHTLY
     Route: 048
  4. XYREM [Suspect]
     Indication: CATAPLEXY
     Dosage: NIGHTLY
     Route: 048
  5. ALPRAZOLAM [Suspect]
     Dosage: UNKNOWN DOSE
     Route: 048
     Dates: start: 201302
  6. ALPRAZOLAM [Suspect]
     Dosage: UNKNWON DOSE
     Route: 048

REACTIONS (2)
  - Death [Fatal]
  - Overdose [Unknown]
